FAERS Safety Report 4962625-4 (Version None)
Quarter: 2006Q1

REPORT INFORMATION
  Report Type: 
  Country: None (occurrence: None)
  Receive Date: 20060201
  Receipt Date: 20051107
  Transmission Date: 20060701
  Serious: No
  Sender: FDA-Public Use
  Company Number: 2005PV004093

PATIENT
  Sex: Male

DRUGS (4)
  1. BYETTA [Suspect]
     Indication: DIABETES MELLITUS NON-INSULIN-DEPENDENT
     Dosage: 5 MCG;QD;SC
     Route: 058
     Dates: start: 20051001, end: 20050101
  2. METFORMIN [Concomitant]
  3. TZD [Concomitant]
  4. SFU [Concomitant]

REACTIONS (1)
  - HYPERSENSITIVITY [None]
